FAERS Safety Report 11383824 (Version 4)
Quarter: 2015Q4

REPORT INFORMATION
  Report Type: Spontaneous
  Country: JP (occurrence: JP)
  Receive Date: 20150814
  Receipt Date: 20151027
  Transmission Date: 20160304
  Serious: Yes (Hospitalization, Other)
  Sender: FDA-Public Use
  Company Number: JP-SANTEN-201500865

PATIENT

DRUGS (15)
  1. CRAVIT [Suspect]
     Active Substance: LEVOFLOXACIN
     Dosage: UNK, QID
     Route: 047
     Dates: end: 20131015
  2. COSOPT [Suspect]
     Active Substance: DORZOLAMIDE HYDROCHLORIDE\TIMOLOL MALEATE
     Dosage: UNK, BID
     Route: 047
     Dates: start: 20130716
  3. CRIZOTINIB [Suspect]
     Active Substance: CRIZOTINIB
     Dosage: UNK, BID
     Route: 048
     Dates: start: 20130425, end: 20130501
  4. MYDRIN-P [Suspect]
     Active Substance: PHENYLEPHRINE HYDROCHLORIDE\TROPICAMIDE
     Dosage: UNK, BID
     Route: 047
  5. LUMIGAN [Concomitant]
     Active Substance: BIMATOPROST
     Dosage: UNK, SINGLE
     Dates: start: 20130716
  6. CRIZOTINIB [Suspect]
     Active Substance: CRIZOTINIB
     Indication: NON-SMALL CELL LUNG CANCER
     Dosage: UNK UNK, BID
     Route: 048
     Dates: start: 20130225, end: 20130306
  7. ALPHAGAN P [Concomitant]
     Active Substance: BRIMONIDINE TARTRATE
     Dosage: UNK, BID
     Dates: start: 20130716
  8. ALDACTONE [Concomitant]
     Active Substance: SPIRONOLACTONE
     Dosage: UNK
     Dates: start: 20130304
  9. CRIZOTINIB [Suspect]
     Active Substance: CRIZOTINIB
     Dosage: UNK, BID
     Route: 048
     Dates: start: 20130504, end: 20130627
  10. CRIZOTINIB [Suspect]
     Active Substance: CRIZOTINIB
     Dosage: UNK, BID
     Route: 048
     Dates: start: 20130327, end: 20130402
  11. CRIZOTINIB [Suspect]
     Active Substance: CRIZOTINIB
     Dosage: UNK, BID
     Route: 048
     Dates: start: 20130410, end: 20130416
  12. CRIZOTINIB [Suspect]
     Active Substance: CRIZOTINIB
     Dosage: UNK UNK, BID
     Route: 048
     Dates: start: 20130314, end: 20130320
  13. FLUMETHOLON [Suspect]
     Active Substance: FLUOROMETHOLONE
     Dosage: UNK
     Route: 047
     Dates: start: 20130718, end: 20131015
  14. RINDERON                           /00008501/ [Concomitant]
     Active Substance: BETAMETHASONE
     Dosage: UNK, QID
     Route: 047
     Dates: end: 20130718
  15. BRONUCK [Concomitant]
     Active Substance: BROMFENAC SODIUM
     Dosage: UNK, BID
     Route: 047

REACTIONS (4)
  - Intraocular pressure increased [Recovered/Resolved]
  - Intraocular pressure increased [Recovered/Resolved]
  - Oedema [Recovered/Resolved]
  - Glaucoma [Recovered/Resolved]

NARRATIVE: CASE EVENT DATE: 20130301
